FAERS Safety Report 19595534 (Version 1)
Quarter: 2021Q3

REPORT INFORMATION
  Report Type: Spontaneous
  Country: FR (occurrence: FR)
  Receive Date: 20210723
  Receipt Date: 20210723
  Transmission Date: 20211014
  Serious: Yes (Hospitalization)
  Sender: FDA-Public Use
  Company Number: FR-SUN PHARMACEUTICAL INDUSTRIES LTD-2021RR-305420

PATIENT
  Age: 73 Year
  Sex: Male
  Weight: 80 kg

DRUGS (1)
  1. GEMCITABINE. [Suspect]
     Active Substance: GEMCITABINE
     Indication: ADENOCARCINOMA PANCREAS
     Dosage: 1000 MILLIGRAM/SQ. METER, UNK
     Route: 041
     Dates: start: 20200813, end: 20210218

REACTIONS (1)
  - Thrombotic microangiopathy [Not Recovered/Not Resolved]

NARRATIVE: CASE EVENT DATE: 202101
